FAERS Safety Report 9057048 (Version 1)
Quarter: 2013Q1

REPORT INFORMATION
  Report Type: Report from Study
  Country: US (occurrence: US)
  Receive Date: 20130131
  Receipt Date: 20130131
  Transmission Date: 20140127
  Serious: No
  Sender: FDA-Public Use
  Company Number: US-ABBOTT-12P-163-0992883-00

PATIENT
  Age: 35 Year
  Sex: Female

DRUGS (8)
  1. HUMIRA [Suspect]
     Indication: CROHN^S DISEASE
     Dosage: LOADING DOSE
     Dates: start: 20121003
  2. LEXAPRO [Concomitant]
     Indication: BIPOLAR DISORDER
  3. DIVALPROEX [Concomitant]
     Indication: BIPOLAR DISORDER
  4. TOPAMAX [Concomitant]
     Indication: BIPOLAR DISORDER
  5. ELMIRON [Concomitant]
     Indication: CYSTITIS INTERSTITIAL
  6. IMURAN [Concomitant]
     Indication: CROHN^S DISEASE
  7. PENTASA [Concomitant]
     Indication: CROHN^S DISEASE
  8. OMEPRAZOLE [Concomitant]
     Indication: CROHN^S DISEASE

REACTIONS (1)
  - Myalgia [Not Recovered/Not Resolved]
